FAERS Safety Report 10247485 (Version 1)
Quarter: 2014Q2

REPORT INFORMATION
  Report Type: Spontaneous
  Country: US (occurrence: US)
  Receive Date: 20140619
  Receipt Date: 20140619
  Transmission Date: 20141212
  Serious: Yes (Other)
  Sender: FDA-Public Use
  Company Number: US-TEVA-487964USA

PATIENT
  Age: 45 Year
  Sex: Female

DRUGS (2)
  1. COPAXONE [Suspect]
     Indication: MULTIPLE SCLEROSIS
     Dates: start: 20101108
  2. AMOXICILLIN [Suspect]

REACTIONS (6)
  - Sinusitis [Unknown]
  - Immediate post-injection reaction [Unknown]
  - Swelling face [Unknown]
  - Dyspnoea [Unknown]
  - Vomiting [Unknown]
  - Diarrhoea [Unknown]
